FAERS Safety Report 4693685-6 (Version None)
Quarter: 2005Q2

REPORT INFORMATION
  Report Type: 
  Country: None (occurrence: None)
  Receive Date: 20050615
  Receipt Date: 20050526
  Transmission Date: 20051028
  Serious: No
  Sender: FDA-Public Use
  Company Number: USA050597816

PATIENT
  Age: 72 Year
  Sex: Female

DRUGS (5)
  1. CYMBALTA [Suspect]
     Indication: DEPRESSION
     Dosage: 60 MG DAY
     Route: 048
     Dates: start: 20050207, end: 20050517
  2. GLUCOPHAGE [Concomitant]
  3. PAXIL [Concomitant]
  4. FUROSEMIDE [Concomitant]
  5. MULTI-VITAMIN [Concomitant]

REACTIONS (4)
  - CHROMATURIA [None]
  - DRUG INEFFECTIVE [None]
  - EYE DISORDER [None]
  - THERAPEUTIC RESPONSE DECREASED [None]
